FAERS Safety Report 6299503-7 (Version None)
Quarter: 2009Q3

REPORT INFORMATION
  Report Type: 
  Country: None (occurrence: None)
  Receive Date: 20090806
  Receipt Date: 20090731
  Transmission Date: 20100115
  Serious: Yes (Life-Threatening, Hospitalization)
  Sender: FDA-Public Use
  Company Number: B0587576A

PATIENT
  Age: 74 Year
  Sex: Male

DRUGS (6)
  1. ZEFFIX [Suspect]
     Indication: DRUG USE FOR UNKNOWN INDICATION
     Route: 048
     Dates: start: 20081001, end: 20090312
  2. LOSARTAN [Suspect]
     Indication: DRUG USE FOR UNKNOWN INDICATION
     Route: 048
     Dates: end: 20090312
  3. VIREAD [Suspect]
     Indication: DRUG USE FOR UNKNOWN INDICATION
     Route: 048
     Dates: start: 20081001, end: 20090312
  4. METFORMIN HCL [Concomitant]
     Route: 048
  5. HIDROSALURETIL [Concomitant]
     Route: 048
  6. OMEPRAZOL [Concomitant]
     Route: 048

REACTIONS (5)
  - DRUG INTERACTION [None]
  - METABOLIC ACIDOSIS [None]
  - RENAL FAILURE ACUTE [None]
  - RENAL TUBULAR NECROSIS [None]
  - VOMITING [None]
